FAERS Safety Report 6398064-1 (Version None)
Quarter: 2009Q4

REPORT INFORMATION
  Report Type: 
  Country: None (occurrence: None)
  Receive Date: 20091013
  Receipt Date: 20091008
  Transmission Date: 20100525
  Serious: Yes (Life-Threatening)
  Sender: FDA-Public Use
  Company Number: GR-ROCHE-661524

PATIENT
  Age: 70 Year
  Sex: Female

DRUGS (5)
  1. BONIVA [Suspect]
     Indication: OSTEOPOROSIS
     Route: 048
     Dates: start: 20070801, end: 20090801
  2. PREZOLON [Concomitant]
     Indication: RHEUMATOID ARTHRITIS
  3. METHOTREXATE [Concomitant]
     Indication: RHEUMATOID ARTHRITIS
  4. KINERET [Concomitant]
     Indication: RHEUMATOID ARTHRITIS
  5. PARIET [Concomitant]
     Indication: PROPHYLAXIS
     Route: 048

REACTIONS (1)
  - ATRIAL FIBRILLATION [None]
